FAERS Safety Report 8461653-4 (Version None)
Quarter: 2012Q2

REPORT INFORMATION
  Report Type: 
  Country: None (occurrence: None)
  Receive Date: 20120625
  Receipt Date: 20120621
  Transmission Date: 20120825
  Serious: Yes (Life-Threatening, Hospitalization, Other)
  Sender: FDA-Public Use
  Company Number: PHHY2012JP031664

PATIENT
  Age: 57 Year
  Sex: Female

DRUGS (4)
  1. ZYPREXA [Concomitant]
  2. HOKUNALIN [Concomitant]
  3. FLOMOX [Concomitant]
     Dosage: 100 MG, TID
     Route: 048
     Dates: start: 20120409
  4. CLOZARIL [Suspect]
     Indication: SCHIZOPHRENIA
     Dosage: 125 MG DAILY
     Route: 048
     Dates: start: 20120328, end: 20120412

REACTIONS (8)
  - RENAL FAILURE ACUTE [None]
  - GENERALISED OEDEMA [None]
  - BLOOD PRESSURE DECREASED [None]
  - PLEURAL EFFUSION [None]
  - PYREXIA [None]
  - DIARRHOEA [None]
  - NEUROLEPTIC MALIGNANT SYNDROME [None]
  - CARDIAC FAILURE ACUTE [None]
